FAERS Safety Report 5216935-6 (Version None)
Quarter: 2007Q1

REPORT INFORMATION
  Report Type: 
  Country: None (occurrence: None)
  Receive Date: 20070119
  Receipt Date: 20070105
  Transmission Date: 20070707
  Serious: Yes (Other)
  Sender: FDA-Public Use
  Company Number: 234958

PATIENT
  Age: 50 Year
  Sex: Female

DRUGS (9)
  1. AVASTIN [Suspect]
     Indication: DRUG USE FOR UNKNOWN INDICATION
     Dosage: UNK
  2. CAMPTOSAR [Suspect]
     Indication: COLORECTAL CANCER METASTATIC
     Dosage: 260 MG
     Dates: start: 20051201
  3. ATROPINE [Concomitant]
  4. FLUOROURACIL [Concomitant]
  5. IBUPROFEN [Concomitant]
  6. MOVICOL (ELECTROLYTES NOS, POLYETHYLENE GLYCOL) [Concomitant]
  7. ONDANSETRON HCL [Concomitant]
  8. ACETAMINOPHEN [Concomitant]
  9. GENERIC COMPONENT(S) NOT KNOWN (GENERIC COMPONENT(S) NOT KNOWN) [Concomitant]

REACTIONS (2)
  - HAEMORRHAGE [None]
  - SALIVARY HYPERSECRETION [None]
